FAERS Safety Report 4285611-9 (Version None)
Quarter: 2004Q1

REPORT INFORMATION
  Report Type: 
  Country: None (occurrence: None)
  Receive Date: 20040203
  Receipt Date: 20040122
  Transmission Date: 20041129
  Serious: Yes (Other)
  Sender: FDA-Public Use
  Company Number: 200410410BCC

PATIENT
  Age: 75 Year
  Sex: Female
  Weight: 68.0396 kg

DRUGS (4)
  1. MILK OF MAGNESIA TAB [Suspect]
     Indication: CONSTIPATION
     Dosage: PRN, ORAL
     Route: 048
  2. COUMADIN [Concomitant]
  3. KLONOPIN [Concomitant]
  4. LIPITOR [Concomitant]

REACTIONS (1)
  - SYNCOPE [None]
